FAERS Safety Report 5556130-4 (Version None)
Quarter: 2007Q4

REPORT INFORMATION
  Report Type: 
  Country: None (occurrence: None)
  Receive Date: 20071213
  Receipt Date: 20071211
  Transmission Date: 20080405
  Serious: Yes (Other)
  Sender: FDA-Public Use
  Company Number: CA-MERCK-0712CAN00033

PATIENT
  Age: 73 Year
  Sex: Female
  Weight: 54 kg

DRUGS (3)
  1. TIMOPTIC [Suspect]
     Route: 047
  2. BRIMONIDINE TARTRATE [Suspect]
     Route: 047
  3. LATANOPROST [Concomitant]
     Route: 065

REACTIONS (4)
  - DRUG INEFFECTIVE [None]
  - EYE BURNS [None]
  - EYE PAIN [None]
  - INTRAOCULAR PRESSURE INCREASED [None]
